FAERS Safety Report 12594241 (Version 3)
Quarter: 2016Q3

REPORT INFORMATION
  Report Type: Spontaneous
  Country: US (occurrence: DE)
  Receive Date: 20160726
  Receipt Date: 20160921
  Transmission Date: 20161109
  Serious: Yes (Hospitalization, Other)
  Sender: FDA-Public Use
  Company Number: DE-INCYTE CORPORATION-2016IN004361

PATIENT
  Sex: Male
  Weight: 78 kg

DRUGS (1)
  1. JAKAFI [Suspect]
     Active Substance: RUXOLITINIB
     Indication: POLYCYTHAEMIA VERA
     Dosage: 10 MG, BID
     Route: 048
     Dates: start: 20151002, end: 20160712

REACTIONS (10)
  - Tuberculosis [Recovered/Resolved]
  - Hyperuricaemia [Unknown]
  - Organising pneumonia [Unknown]
  - Granulocyte count increased [Unknown]
  - Inflammatory pseudotumour [Unknown]
  - Metastases to lymph nodes [Unknown]
  - White blood cell count increased [Unknown]
  - Lymphocyte count decreased [Unknown]
  - Granuloma [Unknown]
  - Mediastinal mass [Unknown]

NARRATIVE: CASE EVENT DATE: 20151215
